FAERS Safety Report 12946684 (Version 2)
Quarter: 2017Q2

REPORT INFORMATION
  Report Type: Spontaneous
  Country: US (occurrence: US)
  Receive Date: 20161116
  Receipt Date: 20170406
  Transmission Date: 20170830
  Serious: No
  Sender: FDA-Public Use
  Company Number: US-LEO PHARMA-244773

PATIENT
  Age: 60 Year
  Sex: Female

DRUGS (3)
  1. PICATO [Suspect]
     Active Substance: INGENOL MEBUTATE
     Indication: PRECANCEROUS SKIN LESION
     Route: 061
     Dates: start: 20161108, end: 20161110
  2. VITAMINS [Concomitant]
     Active Substance: VITAMINS
     Indication: MENOPAUSE
  3. HORMONE REPLACEMENT THERAPY [Concomitant]
     Active Substance: UNSPECIFIED INGREDIENT
     Indication: MENOPAUSE

REACTIONS (9)
  - Sleep disorder [Recovered/Resolved]
  - Application site pruritus [Recovered/Resolved]
  - Wrong technique in product usage process [Unknown]
  - Application site discharge [Recovered/Resolved]
  - Precancerous skin lesion [Not Recovered/Not Resolved]
  - Application site pain [Recovered/Resolved]
  - Application site scab [Recovered/Resolved]
  - Application site hypoaesthesia [Recovered/Resolved]
  - Application site vesicles [Recovered/Resolved]

NARRATIVE: CASE EVENT DATE: 20161108
